FAERS Safety Report 11826402 (Version 1)
Quarter: 2015Q4

REPORT INFORMATION
  Report Type: Spontaneous
  Country: US (occurrence: None)
  Receive Date: 20151210
  Receipt Date: 20151210
  Transmission Date: 20160305
  Serious: Yes (Other)
  Sender: FDA-Public Use
  Company Number: None

PATIENT
  Age: 10 Year
  Sex: Male

DRUGS (7)
  1. JADENU [Suspect]
     Active Substance: DEFERASIROX
     Indication: BLOOD IRON ABNORMAL
     Route: 048
  2. JADENU [Suspect]
     Active Substance: DEFERASIROX
     Indication: METABOLIC DISORDER
     Route: 048
  3. FOLIC ACID. [Concomitant]
     Active Substance: FOLIC ACID
  4. PONTELLILIN [Concomitant]
  5. HYDROCODONE/APAP [Concomitant]
     Active Substance: ACETAMINOPHEN\HYDROCODONE BITARTRATE
  6. LIDOCAINE/PRILINCAINE [Concomitant]
  7. OXYBUTYNIN [Concomitant]
     Active Substance: OXYBUTYNIN

REACTIONS (1)
  - Drug dose omission [None]

NARRATIVE: CASE EVENT DATE: 201512
